FAERS Safety Report 8008580-4 (Version None)
Quarter: 2011Q4

REPORT INFORMATION
  Report Type: 
  Country: None (occurrence: None)
  Receive Date: 20111227
  Receipt Date: 20111212
  Transmission Date: 20120403
  Serious: Yes (Other)
  Sender: FDA-Public Use
  Company Number: JP-ROCHE-1023833

PATIENT
  Age: 73 Year
  Sex: Female

DRUGS (2)
  1. RANIBIZUMAB [Suspect]
     Indication: AGE-RELATED MACULAR DEGENERATION
     Route: 050
     Dates: start: 20090623
  2. TRIAMCINOLONE [Concomitant]
     Indication: AGE-RELATED MACULAR DEGENERATION

REACTIONS (1)
  - VITREOUS HAEMORRHAGE [None]
